FAERS Safety Report 24888772 (Version 1)
Quarter: 2025Q1

REPORT INFORMATION
  Report Type: Spontaneous
  Country: GB (occurrence: GB)
  Receive Date: 20250127
  Receipt Date: 20250127
  Transmission Date: 20250409
  Serious: Yes (Hospitalization, Other)
  Sender: MYLAN
  Company Number: GB-MYLANLABS-2025M1005974

PATIENT
  Sex: Female

DRUGS (3)
  1. CLOZARIL [Suspect]
     Active Substance: CLOZAPINE
     Indication: Schizophrenia
     Route: 048
     Dates: start: 20130726, end: 20250110
  2. CLOZARIL [Suspect]
     Active Substance: CLOZAPINE
     Dosage: 300 MILLIGRAM, BID (HIGHER DOSE OF 300 MG IN THE MORNING AND 300 MG IN THE EVENING)
     Route: 048
     Dates: start: 20250113
  3. CLOZARIL [Suspect]
     Active Substance: CLOZAPINE
     Dosage: 200 MILLIGRAM, BID (DOSE WAS REDUCED TO 200 MG DAY AND 200 MG NIGHT)
     Route: 048
     Dates: start: 20250117

REACTIONS (6)
  - Hospitalisation [Unknown]
  - Seizure [Unknown]
  - Sepsis [Unknown]
  - Renal failure [Unknown]
  - Road traffic accident [Unknown]
  - Product dose omission issue [Unknown]

NARRATIVE: CASE EVENT DATE: 20250101
